FAERS Safety Report 8770658 (Version 1)
Quarter: 2012Q4

REPORT INFORMATION
  Report Type: 
  Country: DE (occurrence: DE)
  Receive Date: 20120906
  Receipt Date: 20120906
  Transmission Date: 20130627
  Serious: Yes (Hospitalization)
  Sender: FDA-Public Use
  Company Number: DE-MYLANLABS-2012S1017613

PATIENT
  Age: 25 Year
  Sex: Male

DRUGS (1)
  1. KETAMINE [Suspect]
     Indication: DRUG ABUSE
     Dosage: 75mg/day for over 5y
     Route: 045

REACTIONS (3)
  - Cystitis erosive [Recovering/Resolving]
  - Drug abuse [Unknown]
  - Drug dependence [Unknown]
